FAERS Safety Report 21637781 (Version 1)
Quarter: 2022Q4

REPORT INFORMATION
  Report Type: Spontaneous
  Country: BE (occurrence: BE)
  Receive Date: 20221124
  Receipt Date: 20221124
  Transmission Date: 20230112
  Serious: Yes (Hospitalization)
  Sender: FDA-Public Use
  Company Number: BE-STRIDES ARCOLAB LIMITED-2022SP015678

PATIENT
  Age: 43 Year
  Sex: Male

DRUGS (12)
  1. HYDROCORTISONE [Suspect]
     Active Substance: HYDROCORTISONE
     Indication: Cushing^s syndrome
     Dosage: UNK
     Route: 065
  2. DEXAMETHASONE [Suspect]
     Active Substance: DEXAMETHASONE
     Indication: COVID-19
     Dosage: 10 MILLIGRAM (PER DAY)
     Route: 065
  3. KETOCONAZOLE [Suspect]
     Active Substance: KETOCONAZOLE
     Indication: Cushing^s syndrome
     Dosage: UNK
     Route: 065
  4. KETOCONAZOLE [Suspect]
     Active Substance: KETOCONAZOLE
     Indication: Adrenocortical carcinoma
     Dosage: 800 MILLIGRAM (PER DAY)
     Route: 065
  5. KETOCONAZOLE [Suspect]
     Active Substance: KETOCONAZOLE
     Dosage: UNK(ADMINISTERED THROUGH A NASOGASTRIC TUBE)
     Route: 065
  6. CABERGOLINE [Suspect]
     Active Substance: CABERGOLINE
     Indication: Adrenocortical carcinoma
     Dosage: UNK
     Route: 065
  7. NIVOLUMAB [Suspect]
     Active Substance: NIVOLUMAB
     Indication: Adrenocortical carcinoma
     Dosage: 240 MILLIGRAM
     Route: 065
  8. NIVOLUMAB [Suspect]
     Active Substance: NIVOLUMAB
     Indication: Metastatic neoplasm
     Dosage: UNK
     Route: 065
  9. TEMOZOLOMIDE [Suspect]
     Active Substance: TEMOZOLOMIDE
     Indication: Adrenocortical carcinoma
     Dosage: UNK
     Route: 065
  10. IPILIMUMAB [Suspect]
     Active Substance: IPILIMUMAB
     Indication: Adrenocortical carcinoma
     Dosage: UNK
     Route: 065
  11. TINZAPARIN [Concomitant]
     Active Substance: TINZAPARIN
     Indication: Prophylaxis
     Dosage: 14000 INTERNATIONAL UNIT (PER DAY)
     Route: 065
  12. PASIREOTIDE [Concomitant]
     Active Substance: PASIREOTIDE
     Indication: Adrenocortical carcinoma
     Dosage: UNK
     Route: 065

REACTIONS (8)
  - Cortisol increased [Unknown]
  - Thrombophlebitis septic [Unknown]
  - Serratia infection [Unknown]
  - Staphylococcal sepsis [Unknown]
  - Haemophilus infection [Unknown]
  - Pneumonia [Unknown]
  - Haematological infection [Unknown]
  - Off label use [Unknown]
